FAERS Safety Report 6082662-9 (Version None)
Quarter: 2009Q1

REPORT INFORMATION
  Report Type: 
  Country: None (occurrence: None)
  Receive Date: 20090218
  Receipt Date: 20090209
  Transmission Date: 20090719
  Serious: Yes (Other)
  Sender: FDA-Public Use
  Company Number: PHBS2009FR00786

PATIENT

DRUGS (4)
  1. ETOPOSIDE [Suspect]
     Indication: RETINOBLASTOMA
     Dosage: 150 MG/M2/DAY
  2. ETOPOSIDE [Suspect]
     Dosage: 150 MG/M2/DAY
  3. CARBOPLATIN [Suspect]
     Dosage: 200 MG/M2/DAY
  4. CARBOPLATIN [Suspect]
     Dosage: 200 MG/M2/DAY

REACTIONS (3)
  - DEHYDRATION [None]
  - DIARRHOEA [None]
  - RENAL FAILURE [None]
